FAERS Safety Report 21089632 (Version 1)
Quarter: 2022Q3

REPORT INFORMATION
  Report Type: Spontaneous
  Country: US (occurrence: US)
  Receive Date: 20220715
  Receipt Date: 20220715
  Transmission Date: 20221027
  Serious: No
  Sender: FDA-Public Use
  Company Number: US-TEVA-2022-US-2056369

PATIENT
  Age: 69 Year
  Sex: Male

DRUGS (1)
  1. MUPIROCIN [Suspect]
     Active Substance: MUPIROCIN
     Indication: Product used for unknown indication
     Route: 065
     Dates: start: 202204

REACTIONS (10)
  - Skin disorder [Unknown]
  - Oesophageal disorder [Unknown]
  - Dry mouth [Unknown]
  - Dyspepsia [Unknown]
  - Oral discomfort [Unknown]
  - Drug ineffective [Unknown]
  - Accidental exposure to product [Unknown]
  - Product quality issue [Unknown]
  - Product prescribing error [Unknown]
  - Product prescribing issue [Unknown]

NARRATIVE: CASE EVENT DATE: 20220101
